FAERS Safety Report 4553741-X (Version None)
Quarter: 2005Q1

REPORT INFORMATION
  Report Type: 
  Country: None (occurrence: None)
  Receive Date: 20050114
  Receipt Date: 20050114
  Transmission Date: 20050727
  Serious: Yes (Death)
  Sender: FDA-Public Use
  Company Number: None

PATIENT
  Age: 41 Year
  Sex: Male
  Weight: 81.6475 kg

DRUGS (2)
  1. OXYCONTIN [Suspect]
     Indication: PAIN
     Dosage: 40 MG 2 TIMES A DAY ORAL
     Route: 048
  2. OXYCONTIN [Suspect]
     Indication: SPINAL OPERATION
     Dosage: 40 MG 2 TIMES A DAY ORAL
     Route: 048

REACTIONS (1)
  - ACCIDENTAL OVERDOSE [None]
